FAERS Safety Report 10197528 (Version 1)
Quarter: 2014Q2

REPORT INFORMATION
  Report Type: Spontaneous
  Country: US (occurrence: US)
  Receive Date: 20140527
  Receipt Date: 20140527
  Transmission Date: 20141212
  Serious: No
  Sender: FDA-Public Use
  Company Number: US-BAYER-2014-068797

PATIENT
  Age: 50 Year
  Sex: Male
  Weight: 136 kg

DRUGS (2)
  1. ALEVE CAPLET [Suspect]
     Indication: BACK PAIN
     Dosage: UNK,UNK,QD
     Route: 048
     Dates: start: 2011, end: 201404
  2. ALEVE CAPLET [Suspect]
     Indication: BACK PAIN
     Dosage: UNK
     Route: 048
     Dates: start: 201404, end: 20140504

REACTIONS (8)
  - Incorrect drug administration duration [None]
  - Extra dose administered [None]
  - Oedema peripheral [Not Recovered/Not Resolved]
  - Extra dose administered [None]
  - Swelling [Not Recovered/Not Resolved]
  - Pain [None]
  - Hypersensitivity [Not Recovered/Not Resolved]
  - Cough [Not Recovered/Not Resolved]
